FAERS Safety Report 8188882-1 (Version None)
Quarter: 2012Q1

REPORT INFORMATION
  Report Type: 
  Country: None (occurrence: None)
  Receive Date: 20120306
  Receipt Date: 20120227
  Transmission Date: 20120608
  Serious: Yes (Hospitalization)
  Sender: FDA-Public Use
  Company Number: US-VERTEX PHARMACEUTICALS INC.-AE-2012-002946

PATIENT
  Sex: Male

DRUGS (3)
  1. INCIVEK [Suspect]
     Indication: HEPATITIS C
     Route: 048
     Dates: start: 20111113, end: 20120215
  2. RIBAVIRIN [Concomitant]
     Indication: HEPATITIS C
     Route: 048
     Dates: start: 20111113, end: 20120215
  3. PEGASYS [Concomitant]
     Indication: HEPATITIS C
     Route: 058
     Dates: start: 20111113, end: 20120215

REACTIONS (8)
  - RASH [None]
  - PYREXIA [None]
  - FATIGUE [None]
  - SYNCOPE [None]
  - DYSPNOEA [None]
  - FALL [None]
  - HEADACHE [None]
  - FACIAL BONES FRACTURE [None]
